FAERS Safety Report 4897809-7 (Version None)
Quarter: 2006Q1

REPORT INFORMATION
  Report Type: 
  Country: None (occurrence: None)
  Receive Date: 20060130
  Receipt Date: 20060120
  Transmission Date: 20060701
  Serious: Yes (Death)
  Sender: FDA-Public Use
  Company Number: 2006-01-1284

PATIENT
  Age: 89 Year
  Sex: Male

DRUGS (1)
  1. K-DUR 10 [Suspect]
     Dosage: 20 MEQ ORAL
     Route: 048
     Dates: start: 20050421

REACTIONS (1)
  - DEATH [None]
